FAERS Safety Report 6417359-6 (Version None)
Quarter: 2009Q4

REPORT INFORMATION
  Report Type: 
  Country: None (occurrence: None)
  Receive Date: 20091028
  Receipt Date: 20091009
  Transmission Date: 20100525
  Serious: Yes (Other)
  Sender: FDA-Public Use
  Company Number: PL-PFIZER INC-2009287732

PATIENT
  Age: 51 Year

DRUGS (9)
  1. NELFINAVIR MESILATE [Suspect]
     Indication: ACQUIRED IMMUNODEFICIENCY SYNDROME
     Dosage: UNK
     Route: 065
     Dates: start: 20020115
  2. ENFUVIRTIDE [Suspect]
     Indication: ACQUIRED IMMUNODEFICIENCY SYNDROME
     Dosage: UNK
     Route: 065
     Dates: start: 20020715
  3. SAQUINAVIR [Suspect]
     Indication: ACQUIRED IMMUNODEFICIENCY SYNDROME
     Dosage: UNK
     Route: 065
     Dates: start: 20020715
  4. ZIDOVUDINE [Concomitant]
     Dosage: UNK
     Dates: start: 20020715
  5. LAMIVUDINE [Concomitant]
     Dosage: UNK
     Dates: start: 20020715
  6. STAVUDINE [Concomitant]
     Dosage: UNK
     Dates: start: 20020715
  7. LOPINAVIR [Concomitant]
     Dosage: UNK
     Dates: start: 20020715
  8. FOSAMPRENAVIR [Concomitant]
     Dosage: UNK
     Dates: start: 20020715
  9. RITONAVIR [Concomitant]
     Dosage: UNK
     Dates: start: 20020715

REACTIONS (1)
  - LUNG NEOPLASM MALIGNANT [None]
